FAERS Safety Report 8261687-9 (Version None)
Quarter: 2012Q1

REPORT INFORMATION
  Report Type: 
  Country: None (occurrence: None)
  Receive Date: 20120321
  Receipt Date: 20111121
  Transmission Date: 20120608
  Serious: Yes (Other)
  Sender: FDA-Public Use
  Company Number: 2011SP054734

PATIENT
  Age: 53 Year
  Sex: Female

DRUGS (3)
  1. RIBAVIRIN [Suspect]
     Indication: PRODUCT USED FOR UNKNOWN INDICATION
  2. PEG-INTRON [Suspect]
     Indication: HEPATITIS C
     Dosage: 80 MCG;QW
     Dates: start: 20080101, end: 20080101
  3. PEG-INTRON [Suspect]
     Indication: HEPATITIS C
     Dosage: 80 MCG;QW
     Dates: start: 20111005

REACTIONS (7)
  - PAIN [None]
  - SUPRAVENTRICULAR TACHYCARDIA [None]
  - VISUAL IMPAIRMENT [None]
  - CHILLS [None]
  - CYSTITIS [None]
  - INCORRECT DOSE ADMINISTERED [None]
  - DEPRESSION [None]
